FAERS Safety Report 19645835 (Version 1)
Quarter: 2021Q3

REPORT INFORMATION
  Report Type: Report from Study
  Country: US (occurrence: US)
  Receive Date: 20210802
  Receipt Date: 20210802
  Transmission Date: 20211014
  Serious: Yes (Other)
  Sender: FDA-Public Use
  Company Number: US-GILEAD-2021-0542253

PATIENT
  Sex: Female

DRUGS (5)
  1. AMLODIPINE [Concomitant]
     Active Substance: AMLODIPINE BESYLATE
  2. REMODULIN [Concomitant]
     Active Substance: TREPROSTINIL
  3. XARELTO [Concomitant]
     Active Substance: RIVAROXABAN
  4. AMBRISENTAN [Suspect]
     Active Substance: AMBRISENTAN
     Indication: PULMONARY HYPERTENSION
     Dosage: 10 MG, QD
     Route: 048
     Dates: start: 20201202
  5. SILDENAFIL. [Concomitant]
     Active Substance: SILDENAFIL

REACTIONS (4)
  - Catheter site pain [Not Recovered/Not Resolved]
  - Tenderness [Not Recovered/Not Resolved]
  - Neck pain [Not Recovered/Not Resolved]
  - Vascular device infection [Unknown]
